FAERS Safety Report 15932757 (Version 2)
Quarter: 2019Q1

REPORT INFORMATION
  Report Type: Spontaneous
  Country: US (occurrence: US)
  Receive Date: 20190207
  Receipt Date: 20190222
  Transmission Date: 20190417
  Serious: Yes (Other)
  Sender: FDA-Public Use
  Company Number: US-AMREGENT-20190168

PATIENT
  Age: 67 Year
  Sex: Male

DRUGS (1)
  1. INJECTAFER [Suspect]
     Active Substance: FERRIC CARBOXYMALTOSE
     Dosage: 750 MG
     Route: 042
     Dates: start: 20181220, end: 20181220

REACTIONS (9)
  - Dyspnoea [Unknown]
  - Nausea [Unknown]
  - Dizziness [Unknown]
  - Chest pain [Unknown]
  - Blood pressure decreased [Unknown]
  - Hypersensitivity [Unknown]
  - Abdominal discomfort [Unknown]
  - Sensory disturbance [Unknown]
  - Flushing [Unknown]

NARRATIVE: CASE EVENT DATE: 20181220
